FAERS Safety Report 4898475-7 (Version None)
Quarter: 2006Q1

REPORT INFORMATION
  Report Type: 
  Country: None (occurrence: None)
  Receive Date: 20060127
  Receipt Date: 20060112
  Transmission Date: 20060701
  Serious: Yes (Hospitalization)
  Sender: FDA-Public Use
  Company Number: US200512000811

PATIENT
  Age: 51 Year
  Sex: Male
  Weight: 108.4 kg

DRUGS (5)
  1. ZYPREXA [Suspect]
     Dosage: 2.5 MG, 2/D
     Dates: start: 20030124, end: 20040617
  2. TRICOR [Concomitant]
  3. ZOCOR [Concomitant]
  4. DIOVAN [Concomitant]
  5. NIASPAN [Concomitant]

REACTIONS (10)
  - ARTERIAL THROMBOSIS LIMB [None]
  - CONSTIPATION [None]
  - CYANOSIS [None]
  - HEPATIC STEATOSIS [None]
  - HEPATOSPLENOMEGALY [None]
  - HYPERTRIGLYCERIDAEMIA [None]
  - PAIN [None]
  - PANCREATIC PSEUDOCYST [None]
  - PANCREATITIS ACUTE [None]
  - PANCREATITIS RELAPSING [None]
